FAERS Safety Report 4274517-7 (Version None)
Quarter: 2004Q1

REPORT INFORMATION
  Report Type: 
  Country: None (occurrence: None)
  Receive Date: 20040120
  Receipt Date: 20040120
  Transmission Date: 20041129
  Serious: No
  Sender: FDA-Public Use
  Company Number: None

PATIENT
  Age: 44 Year
  Sex: Female
  Weight: 61.2356 kg

DRUGS (1)
  1. LAMISIL [Suspect]
     Dosage: 1 TABLET ORAL
     Route: 048
     Dates: start: 20031222, end: 20040322

REACTIONS (1)
  - MIDDLE INSOMNIA [None]
